FAERS Safety Report 7544253-X (Version None)
Quarter: 2011Q2

REPORT INFORMATION
  Report Type: 
  Country: None (occurrence: None)
  Receive Date: 20110613
  Receipt Date: 20070815
  Transmission Date: 20111010
  Serious: Yes (Death)
  Sender: FDA-Public Use
  Company Number: PHMT2007CA01759

PATIENT
  Sex: Female

DRUGS (2)
  1. SANDOSTATIN [Suspect]
     Indication: GASTRIC CANCER
  2. SANDOSTATIN LAR [Suspect]
     Indication: GASTRIC CANCER
     Dosage: 20MG EVERY 4 WEEKS
     Route: 030

REACTIONS (1)
  - DEATH [None]
